FAERS Safety Report 5640655-7 (Version None)
Quarter: 2008Q1

REPORT INFORMATION
  Report Type: 
  Country: None (occurrence: None)
  Receive Date: 20080227
  Receipt Date: 20080226
  Transmission Date: 20080703
  Serious: Yes (Other)
  Sender: FDA-Public Use
  Company Number: A0711735A

PATIENT
  Age: 46 Year
  Sex: Female
  Weight: 70.5 kg

DRUGS (1)
  1. ALLI [Suspect]
     Indication: DRUG USE FOR UNKNOWN INDICATION
     Route: 048
     Dates: start: 20080208, end: 20080201

REACTIONS (5)
  - CHRONIC FATIGUE SYNDROME [None]
  - HAEMATOCHEZIA [None]
  - LIP SWELLING [None]
  - MOUTH ULCERATION [None]
  - RECTAL HAEMORRHAGE [None]
